FAERS Safety Report 19671867 (Version 2)
Quarter: 2021Q3

REPORT INFORMATION
  Report Type: Spontaneous
  Country: CA (occurrence: CA)
  Receive Date: 20210806
  Receipt Date: 20210913
  Transmission Date: 20211014
  Serious: Yes (Hospitalization, Other)
  Sender: FDA-Public Use
  Company Number: NVSC2021CA176269

PATIENT
  Age: 11 Year
  Sex: Male

DRUGS (34)
  1. BACLOFEN. [Suspect]
     Active Substance: BACLOFEN
     Indication: CHILD ABUSE
     Dosage: 20 MG,1 EVERY 8 HOURS
     Route: 048
  2. CLONIDINE. [Suspect]
     Active Substance: CLONIDINE
     Dosage: 0.5 MG, QD
     Route: 065
  3. MONTELUKAST [Suspect]
     Active Substance: MONTELUKAST SODIUM
     Indication: CHILD ABUSE
     Dosage: 10 MG, QD
     Route: 048
  4. CLOBAZAM. [Suspect]
     Active Substance: CLOBAZAM
     Indication: CHILD ABUSE
     Dosage: 20 MG,EVERY 12 HOURS
     Route: 065
  5. GABAPENTIN. [Suspect]
     Active Substance: GABAPENTIN
     Indication: CHILD ABUSE
     Dosage: 600 MG,EVERY 8 HOURS
     Route: 048
  6. CHOLECALCIFEROL SANDOZ [Suspect]
     Active Substance: CHOLECALCIFEROL
     Indication: PRODUCT USED FOR UNKNOWN INDICATION
     Dosage: 2000 IU, QD
     Route: 048
  7. CLONIDINE. [Suspect]
     Active Substance: CLONIDINE
     Indication: PRODUCT USED FOR UNKNOWN INDICATION
     Dosage: 0.1 MG, QD
     Route: 065
  8. DIMENHYDRINATE. [Suspect]
     Active Substance: DIMENHYDRINATE
     Indication: CONSTIPATION
     Dosage: 25 MG
     Route: 065
  9. FLUOXETINE [Suspect]
     Active Substance: FLUOXETINE HYDROCHLORIDE
     Indication: CHILD ABUSE
     Dosage: 20 MG, QD
     Route: 065
  10. KETOROLAC [Suspect]
     Active Substance: KETOROLAC TROMETHAMINE
     Indication: CHILD ABUSE
  11. LORAZEPAM. [Suspect]
     Active Substance: LORAZEPAM
     Indication: SEIZURE
     Dosage: 0.5 MG
     Route: 065
  12. LORAZEPAM. [Suspect]
     Active Substance: LORAZEPAM
     Indication: MUSCLE SPASMS
  13. PANTOPRAZOLE [Suspect]
     Active Substance: PANTOPRAZOLE
     Indication: CHILD ABUSE
     Dosage: 40 MG, QD
     Route: 048
  14. FLUTICASONE FUROATE [Suspect]
     Active Substance: FLUTICASONE FUROATE
     Indication: CHILD ABUSE
     Dosage: 2 DF
     Route: 055
  15. CELECOXIB. [Suspect]
     Active Substance: CELECOXIB
     Indication: CHILD ABUSE
     Dosage: 100 MG,1 EVERY 12 HOURS,CAPSULE
     Route: 065
  16. DIMENHYDRINATE. [Suspect]
     Active Substance: DIMENHYDRINATE
     Indication: CHILD ABUSE
  17. LORAZEPAM. [Suspect]
     Active Substance: LORAZEPAM
     Indication: CHILD ABUSE
  18. VITAMIN C [Suspect]
     Active Substance: ASCORBIC ACID
     Indication: PRODUCT USED FOR UNKNOWN INDICATION
     Dosage: 1500 MG, QD
     Route: 048
  19. ARIPIPRAZOLE. [Suspect]
     Active Substance: ARIPIPRAZOLE
     Indication: CHILD ABUSE
     Dosage: 2 MG, QD
     Route: 048
  20. KETOROLAC [Suspect]
     Active Substance: KETOROLAC TROMETHAMINE
     Indication: PAIN
     Dosage: 20 MG,1 EVERY 6 HOURS
     Route: 065
  21. MELATONIN [Suspect]
     Active Substance: MELATONIN
     Indication: CHILD ABUSE
  22. METHADONE [Suspect]
     Active Substance: METHADONE HYDROCHLORIDE
     Indication: CHILD ABUSE
     Dosage: 2 MG,EVERY 8 HOURS
     Route: 048
  23. MACROGOL 3350 [Suspect]
     Active Substance: POLYETHYLENE GLYCOL 3350
     Indication: CHILD ABUSE
     Dosage: 30 MG,EVERY 12 HOURS
     Route: 048
  24. FLUTICASONE FUROATE [Suspect]
     Active Substance: FLUTICASONE FUROATE
     Dosage: 1 DF, QD
     Route: 055
  25. HYDROMORPHONE [Suspect]
     Active Substance: HYDROMORPHONE
     Indication: BACK PAIN
  26. LEUPROLIDE ACETATE. [Suspect]
     Active Substance: LEUPROLIDE ACETATE
     Indication: CHILD ABUSE
     Dosage: 7.5 MG, QMO
     Route: 030
  27. SALBUTAMOL [Suspect]
     Active Substance: ALBUTEROL
     Indication: CHILD ABUSE
     Dosage: 1 DF,EVERY 4 HOURS
     Route: 065
  28. DIPHENHYDRAMINE. [Suspect]
     Active Substance: DIPHENHYDRAMINE
     Indication: PRURITUS
     Dosage: 12.5 MG,1 EVERY 6 HOURS
     Route: 048
  29. DIPHENHYDRAMINE. [Suspect]
     Active Substance: DIPHENHYDRAMINE
     Indication: CHILD ABUSE
  30. HYDROMORPHONE [Suspect]
     Active Substance: HYDROMORPHONE
     Indication: CHILD ABUSE
     Dosage: UNK
     Route: 065
  31. HYDROXYCHLOROQUINE SULFATE. [Suspect]
     Active Substance: HYDROXYCHLOROQUINE SULFATE
     Indication: CHILD ABUSE
     Dosage: 400 MG, QD
     Route: 048
  32. MELATONIN [Suspect]
     Active Substance: MELATONIN
     Indication: SLEEP DISORDER
     Dosage: UNK
     Route: 065
  33. PHENOBARBITAL. [Suspect]
     Active Substance: PHENOBARBITAL
     Indication: CHILD ABUSE
     Dosage: 30 MG,EVERY 12 HOURS
     Route: 065
  34. RANITIDINE. [Suspect]
     Active Substance: RANITIDINE
     Indication: CHILD ABUSE
     Dosage: 150 MG, QD
     Route: 048

REACTIONS (6)
  - Respiratory depression [Recovered/Resolved]
  - Product prescribing error [Recovered/Resolved]
  - Drug abuse [Recovered/Resolved]
  - Drug dependence [Recovered/Resolved]
  - Intentional product misuse [Recovered/Resolved]
  - Drug ineffective [Recovered/Resolved]
